FAERS Safety Report 7004336-X (Version None)
Quarter: 2010Q3

REPORT INFORMATION
  Report Type: 
  Country: None (occurrence: None)
  Receive Date: 20100921
  Receipt Date: 20100910
  Transmission Date: 20110219
  Serious: No
  Sender: FDA-Public Use
  Company Number: US-BIOGENIDEC-2010BI020019

PATIENT
  Age: 50 Year
  Sex: Female

DRUGS (2)
  1. TYSABRI [Suspect]
     Indication: MULTIPLE SCLEROSIS
     Route: 042
     Dates: start: 20071009, end: 20080102
  2. TYSABRI [Suspect]
     Route: 042
     Dates: start: 20100602

REACTIONS (5)
  - FATIGUE [None]
  - MUSCULAR WEAKNESS [None]
  - SENSORY DISTURBANCE [None]
  - STRESS [None]
  - URINARY TRACT INFECTION [None]
